FAERS Safety Report 16076603 (Version 1)
Quarter: 2019Q2

REPORT INFORMATION
  Report Type: Spontaneous
  Country: AF (occurrence: AF)
  Receive Date: 20190314
  Receipt Date: 20190314
  Transmission Date: 20190711
  Serious: Yes (Other)
  Sender: FDA-Public Use
  Company Number: None

PATIENT
  Age: 60 Year
  Sex: Female
  Weight: 119.7 kg

DRUGS (9)
  1. KLOR [Concomitant]
  2. ROSTAVAN [Concomitant]
  3. COENZYME Q10 [Concomitant]
     Active Substance: UBIDECARENONE
  4. VITAMIN B12 [Concomitant]
     Active Substance: CYANOCOBALAMIN
  5. VICTOZA [Suspect]
     Active Substance: LIRAGLUTIDE
     Indication: TYPE 2 DIABETES MELLITUS
     Dosage: ?          QUANTITY:1 INJECTION(S);?
     Route: 058
     Dates: start: 20190115, end: 20190313
  6. LEVEMIR [Concomitant]
     Active Substance: INSULIN DETEMIR
  7. NOVOLOG [Concomitant]
     Active Substance: INSULIN ASPART
  8. FOLIC ACID. [Concomitant]
     Active Substance: FOLIC ACID
  9. METFORMIN [Concomitant]
     Active Substance: METFORMIN HYDROCHLORIDE

REACTIONS (1)
  - Gingival pain [None]

NARRATIVE: CASE EVENT DATE: 20190119
